FAERS Safety Report 11677805 (Version 2)
Quarter: 2015Q4

REPORT INFORMATION
  Report Type: Spontaneous
  Country: GB (occurrence: GB)
  Receive Date: 20151028
  Receipt Date: 20151105
  Transmission Date: 20160304
  Serious: Yes (Hospitalization, Other)
  Sender: FDA-Public Use
  Company Number: GB-WATSON-2015-12222

PATIENT
  Age: 29 Year
  Sex: Male

DRUGS (8)
  1. DEXAMETHASONE (UNKNOWN) [Suspect]
     Active Substance: DEXAMETHASONE
     Dosage: 16 MG, DAILY
     Route: 065
     Dates: start: 201105
  2. DEXAMETHASONE (UNKNOWN) [Suspect]
     Active Substance: DEXAMETHASONE
     Dosage: 9 MG, DAILY
     Route: 065
     Dates: start: 201104
  3. DEXAMETHASONE (UNKNOWN) [Suspect]
     Active Substance: DEXAMETHASONE
     Indication: STEROID THERAPY
     Dosage: 6 MG, DAILY
     Route: 065
     Dates: start: 200912
  4. DEXAMETHASONE (UNKNOWN) [Suspect]
     Active Substance: DEXAMETHASONE
     Dosage: 6 MG, DAILY
     Route: 065
     Dates: start: 201101
  5. DEXAMETHASONE (UNKNOWN) [Suspect]
     Active Substance: DEXAMETHASONE
     Dosage: 12 MG, DAILY
     Route: 065
     Dates: start: 201009
  6. DEXAMETHASONE (UNKNOWN) [Suspect]
     Active Substance: DEXAMETHASONE
     Indication: PARAESTHESIA
     Dosage: 4 MG, DAILY
     Route: 065
     Dates: start: 201001
  7. DEXAMETHASONE (UNKNOWN) [Suspect]
     Active Substance: DEXAMETHASONE
     Dosage: 16 MG, DAILY
     Route: 065
     Dates: start: 201102
  8. DEXAMETHASONE (UNKNOWN) [Suspect]
     Active Substance: DEXAMETHASONE
     Dosage: 11 MG, DAILY
     Route: 065
     Dates: start: 201104

REACTIONS (2)
  - Benign neoplasm of spinal cord [Unknown]
  - Cushing^s syndrome [Unknown]
